FAERS Safety Report 16199658 (Version 1)
Quarter: 2019Q2

REPORT INFORMATION
  Report Type: Spontaneous
  Country: US (occurrence: US)
  Receive Date: 20190415
  Receipt Date: 20190415
  Transmission Date: 20190711
  Serious: No
  Sender: FDA-Public Use
  Company Number: PHHY2019US085739

PATIENT
  Age: 90 Year
  Sex: Male

DRUGS (1)
  1. VOLTAREN [Suspect]
     Active Substance: DICLOFENAC SODIUM
     Indication: ARTHRITIS
     Dosage: UNK (1 APPLICATION, 4 TIMES A DAY)
     Route: 061
     Dates: start: 20190404, end: 20190408

REACTIONS (2)
  - Application site pain [Recovered/Resolved]
  - Application site perspiration [Recovered/Resolved]

NARRATIVE: CASE EVENT DATE: 20190404
